FAERS Safety Report 9553580 (Version 1)
Quarter: 2013Q3

REPORT INFORMATION
  Report Type: Report from Study
  Country: CA (occurrence: CA)
  Receive Date: 20130925
  Receipt Date: 20130925
  Transmission Date: 20140515
  Serious: Yes (Other)
  Sender: FDA-Public Use
  Company Number: CA-JNJFOC-20130912082

PATIENT
  Sex: Female
  Weight: 88 kg

DRUGS (3)
  1. REMICADE [Suspect]
     Indication: CROHN^S DISEASE
     Route: 042
     Dates: start: 201002
  2. SINGULAIR [Concomitant]
     Route: 065
  3. DILAUDID [Concomitant]
     Route: 065

REACTIONS (3)
  - Fistula [Unknown]
  - Malaise [Unknown]
  - Infection [Unknown]
